FAERS Safety Report 10746295 (Version 6)
Quarter: 2015Q3

REPORT INFORMATION
  Report Type: Report from Study
  Country: US (occurrence: US)
  Receive Date: 20150128
  Receipt Date: 20150819
  Transmission Date: 20151125
  Serious: Yes (Hospitalization, Other)
  Sender: FDA-Public Use
  Company Number: US-GILEAD-2015-0134345

PATIENT
  Age: 60 Year
  Sex: Female
  Weight: 61.77 kg

DRUGS (5)
  1. AMBRISENTAN [Suspect]
     Active Substance: AMBRISENTAN
     Indication: PULMONARY HYPERTENSION
     Dosage: 5 MG, QD
     Route: 065
     Dates: start: 20140917
  2. CHLORHEXIDINE [Suspect]
     Active Substance: CHLORHEXIDINE
     Indication: PRODUCT USED FOR UNKNOWN INDICATION
     Route: 065
  3. REMODULIN [Suspect]
     Active Substance: TREPROSTINIL
     Indication: COR PULMONALE CHRONIC
     Dosage: 15.5 NG/KG/MIN
     Route: 042
     Dates: start: 20141125
  4. REMODULIN [Suspect]
     Active Substance: TREPROSTINIL
     Indication: PULMONARY HYPERTENSION
     Dosage: 14 NG/KG/MIN
     Route: 042
  5. REVATIO [Concomitant]
     Active Substance: SILDENAFIL CITRATE

REACTIONS (11)
  - Allergy to chemicals [Unknown]
  - Pulmonary hypertension [Unknown]
  - Injection site oedema [Unknown]
  - Injection site discharge [Unknown]
  - Injection site irritation [Unknown]
  - Injection site pain [Unknown]
  - Unevaluable event [Unknown]
  - Skin disorder [Unknown]
  - Fluid retention [Recovered/Resolved]
  - Injection site erythema [Unknown]
  - Weight increased [Unknown]

NARRATIVE: CASE EVENT DATE: 20141223
